FAERS Safety Report 18462765 (Version 1)
Quarter: 2020Q4

REPORT INFORMATION
  Report Type: Spontaneous
  Country: US (occurrence: US)
  Receive Date: 20201104
  Receipt Date: 20201104
  Transmission Date: 20210114
  Serious: Yes (Hospitalization)
  Sender: FDA-Public Use
  Company Number: US-EPIC PHARMA LLC-2020EPC00338

PATIENT
  Age: 58 Year
  Sex: Female

DRUGS (1)
  1. NYSTATIN. [Suspect]
     Active Substance: NYSTATIN
     Route: 048

REACTIONS (2)
  - Haemodynamic instability [Recovered/Resolved]
  - Acute generalised exanthematous pustulosis [Recovered/Resolved]
